FAERS Safety Report 20111687 (Version 4)
Quarter: 2022Q4

REPORT INFORMATION
  Report Type: Other
  Country: CA (occurrence: None)
  Receive Date: 20211125
  Receipt Date: 20221017
  Transmission Date: 20230112
  Serious: Yes (Hospitalization)
  Sender: FDA-Public Use
  Company Number: CA-ROCHE-2960182

PATIENT
  Age: 32 Year
  Sex: Female

DRUGS (2)
  1. OCREVUS [Suspect]
     Active Substance: OCRELIZUMAB
     Indication: Relapsing-remitting multiple sclerosis
     Dosage: CONCENTRATE FOR INTRAVENOUS INFUSION?S 300 MG AT DAY 0 AND 14, THEN 600 MG EVERY 6 MONTH.
     Route: 042
     Dates: start: 20181011
  2. DEXILANT [Concomitant]
     Active Substance: DEXLANSOPRAZOLE

REACTIONS (3)
  - COVID-19 [Recovered/Resolved]
  - Pneumonia [Recovered/Resolved]
  - Blood immunoglobulin G decreased [Unknown]

NARRATIVE: CASE EVENT DATE: 20211001
